FAERS Safety Report 10798921 (Version 1)
Quarter: 2015Q1

REPORT INFORMATION
  Report Type: Report from Study
  Country: US (occurrence: US)
  Receive Date: 20150216
  Receipt Date: 20150216
  Transmission Date: 20150721
  Serious: Yes (Hospitalization)
  Sender: FDA-Public Use
  Company Number: US-MERCK-1308USA006655

PATIENT
  Age: 61 Year
  Sex: Male
  Weight: 73.16 kg

DRUGS (19)
  1. TEMOZOLOMIDE. [Suspect]
     Active Substance: TEMOZOLOMIDE
     Indication: NEOPLASM MALIGNANT
     Dosage: 200 MG/M2, FREQUENCY UNKNOWN
     Route: 048
     Dates: start: 20130717, end: 20130717
  2. KEPPRA [Concomitant]
     Active Substance: LEVETIRACETAM
     Indication: PROPHYLAXIS
     Dosage: 250 MG, TWICE A DAY
     Route: 048
     Dates: start: 20130523
  3. ATIVAN [Concomitant]
     Active Substance: LORAZEPAM
     Indication: ANXIETY
     Dosage: 0.5 MG DAILY, AS NEEDED
     Route: 048
     Dates: start: 20130620, end: 20131023
  4. TEMOZOLOMIDE. [Suspect]
     Active Substance: TEMOZOLOMIDE
     Dosage: 200 MG/M2, FREQUENCY UNKNOWN
     Route: 048
     Dates: start: 20130828, end: 20130901
  5. SYNTHROID [Concomitant]
     Active Substance: LEVOTHYROXINE SODIUM
     Indication: HYPOTHYROIDISM
     Dosage: 0.1 MICROGRAM, QD
     Route: 048
     Dates: start: 198001
  6. PLATELETS [Concomitant]
     Active Substance: HUMAN PLATELET, ALLOGENIC
     Dosage: 1 UNIT, ONE TIME DOSE
     Route: 042
     Dates: start: 20130812, end: 20130812
  7. PROTONIX [Concomitant]
     Active Substance: PANTOPRAZOLE SODIUM
     Indication: REFLUX GASTRITIS
     Dosage: 40 MG, QD
     Route: 048
     Dates: start: 20130416
  8. DECADRON [Concomitant]
     Active Substance: DEXAMETHASONE
     Indication: BRAIN OEDEMA
     Dosage: 1.5 MG, ONCE A DAY
     Route: 048
     Dates: start: 20130708, end: 20130820
  9. CYANOCOBALAMIN. [Concomitant]
     Active Substance: CYANOCOBALAMIN
     Indication: ROUTINE HEALTH MAINTENANCE
     Dosage: 2 TABLET, QD
     Route: 048
     Dates: start: 20090415
  10. TYLENOL [Concomitant]
     Active Substance: ACETAMINOPHEN
     Indication: HEADACHE
     Dosage: 1 TABLET DAILY, AS NEEDED
     Route: 048
     Dates: start: 20130615, end: 20131023
  11. BACTRIM [Concomitant]
     Active Substance: SULFAMETHOXAZOLE\TRIMETHOPRIM
     Indication: ANTIFUNGAL PROPHYLAXIS
     Dosage: 1 TABLET DAILY
     Route: 048
     Dates: start: 20130523
  12. PLATELETS [Concomitant]
     Active Substance: HUMAN PLATELET, ALLOGENIC
     Indication: THROMBOCYTOPENIA
     Dosage: 1 UNIT ONE TIME DOSE
     Route: 042
     Dates: start: 20130809, end: 20130809
  13. DILAUDID [Concomitant]
     Active Substance: HYDROMORPHONE HYDROCHLORIDE
     Indication: HEADACHE
     Dosage: 1 MG DAILY, FREQUENCY: UNKNOWN
     Route: 042
     Dates: start: 20130812, end: 20130812
  14. TEMOZOLOMIDE. [Suspect]
     Active Substance: TEMOZOLOMIDE
     Dosage: 200 MG/M2, FREQUENCY UNKNOWN
     Route: 048
     Dates: start: 20130718, end: 20130721
  15. NYSTATIN. [Concomitant]
     Active Substance: NYSTATIN
     Indication: CANDIDA INFECTION
     Dosage: 5 ML, QD
     Route: 050
     Dates: start: 20130516
  16. FERROUS SULFATE [Concomitant]
     Active Substance: FERROUS SULFATE\FERROUS SULFATE, DRIED
     Indication: ROUTINE HEALTH MAINTENANCE
     Dosage: 325 MG, ONCE A DAY
     Route: 048
     Dates: start: 20130708
  17. ZOFRAN [Concomitant]
     Active Substance: ONDANSETRON HYDROCHLORIDE
     Indication: PROPHYLAXIS OF NAUSEA AND VOMITING
     Dosage: 1 TABLET DAILY, AS NEEDED.
     Route: 048
     Dates: start: 20130717, end: 20131023
  18. DILAUDID [Concomitant]
     Active Substance: HYDROMORPHONE HYDROCHLORIDE
     Indication: HEADACHE
     Dosage: 1.5 MG, ONCE
     Route: 042
     Dates: start: 20130812, end: 20130812
  19. FLUCONAZOLE. [Concomitant]
     Active Substance: FLUCONAZOLE
     Indication: CANDIDA INFECTION
     Dosage: 200 MG, ONCE A DAY
     Route: 048
     Dates: start: 201305

REACTIONS (1)
  - Febrile neutropenia [Recovered/Resolved]

NARRATIVE: CASE EVENT DATE: 20130812
